FAERS Safety Report 6877839-6 (Version None)
Quarter: 2010Q3

REPORT INFORMATION
  Report Type: 
  Country: None (occurrence: None)
  Receive Date: 20100727
  Receipt Date: 20070528
  Transmission Date: 20110219
  Serious: No
  Sender: FDA-Public Use
  Company Number: US-PFIZER INC-2007042882

PATIENT
  Sex: Male
  Weight: 88.45 kg

DRUGS (4)
  1. CELEBREX [Suspect]
     Indication: ARTHRALGIA
     Dates: start: 20070501, end: 20070521
  2. CELEBREX [Suspect]
     Dates: start: 20070522, end: 20070525
  3. CELEBREX [Suspect]
     Dates: start: 20070526
  4. VYTORIN [Concomitant]

REACTIONS (4)
  - ARTHRALGIA [None]
  - DRUG INEFFECTIVE [None]
  - EYE PAIN [None]
  - PAIN OF SKIN [None]
